FAERS Safety Report 16994925 (Version 5)
Quarter: 2020Q1

REPORT INFORMATION
  Report Type: Spontaneous
  Country: US (occurrence: US)
  Receive Date: 20191105
  Receipt Date: 20200117
  Transmission Date: 20200409
  Serious: No
  Sender: FDA-Public Use
  Company Number: US-PFIZER INC-2019473001

PATIENT
  Age: 54 Year
  Sex: Female

DRUGS (1)
  1. XELJANZ XR [Suspect]
     Active Substance: TOFACITINIB CITRATE
     Dosage: 11 MG, UNK
     Dates: start: 201910

REACTIONS (5)
  - Constipation [Unknown]
  - Rhinorrhoea [Unknown]
  - Cough [Unknown]
  - Hot flush [Unknown]
  - Paranasal sinus hypersecretion [Not Recovered/Not Resolved]

NARRATIVE: CASE EVENT DATE: 2019
